FAERS Safety Report 5066811-7 (Version None)
Quarter: 2006Q3

REPORT INFORMATION
  Report Type: 
  Country: None (occurrence: None)
  Receive Date: 20060726
  Receipt Date: 20060720
  Transmission Date: 20061208
  Serious: Yes (Life-Threatening, Hospitalization)
  Sender: FDA-Public Use
  Company Number: USA-2006-0024348

PATIENT
  Age: 38 Year
  Sex: Female

DRUGS (3)
  1. CEFDITOREN PIVOXIL (SIMILAR TO NDA 21-222)(CEFDITOREN PIVOXIL) UNKNOWN [Suspect]
     Indication: ERYSIPELAS
     Dosage: 300  MG, DAILY, ORAL
     Route: 048
     Dates: start: 20060521, end: 20060525
  2. LOXONIN(LOXOPROFEN SODIUM) [Suspect]
     Indication: PAIN
     Dosage: 180 MG, DAILY, ORAL
     Route: 048
     Dates: start: 20060521, end: 20060525
  3. MUCOSTA(REBAMIPIDE) [Suspect]
     Indication: GASTRITIS EROSIVE
     Dosage: 300 MG, DAILY, ORAL
     Route: 048
     Dates: start: 20060521, end: 20060525

REACTIONS (1)
  - RHABDOMYOLYSIS [None]
